FAERS Safety Report 8476136-5 (Version None)
Quarter: 2012Q2

REPORT INFORMATION
  Report Type: 
  Country: None (occurrence: None)
  Receive Date: 20120628
  Receipt Date: 20120619
  Transmission Date: 20120825
  Serious: Yes (Hospitalization)
  Sender: FDA-Public Use
  Company Number: US-ELI_LILLY_AND_COMPANY-US201205005139

PATIENT
  Sex: Female

DRUGS (12)
  1. FEXOFENADINE [Concomitant]
     Dosage: UNK
  2. PULMICORT [Concomitant]
     Dosage: UNK
  3. VITAMIN D [Concomitant]
     Dosage: UNK
  4. PANTOPRAZOLE SODIUM [Concomitant]
     Dosage: UNK
  5. SERTRALINE HYDROCHLORIDE [Concomitant]
     Dosage: UNK
  6. FORTEO [Suspect]
     Indication: OSTEOPOROSIS
     Dosage: UNK
     Dates: start: 20120401
  7. SEREVENT [Concomitant]
     Dosage: UNK
  8. PREDNISONE TAB [Concomitant]
     Indication: LUNG DISORDER
     Dosage: UNK
  9. CELEBREX [Concomitant]
     Dosage: UNK
  10. DILTIAZEM HYDROCHOLORIDE [Concomitant]
     Dosage: UNK
  11. DUONEB [Concomitant]
     Dosage: UNK
  12. MULTIPLE VITAMINS [Concomitant]
     Dosage: UNK

REACTIONS (6)
  - PAIN IN EXTREMITY [None]
  - POST PROCEDURAL INFECTION [None]
  - FATIGUE [None]
  - FEELING ABNORMAL [None]
  - LIMB DISCOMFORT [None]
  - STAPHYLOCOCCAL INFECTION [None]
